FAERS Safety Report 5089390-7 (Version None)
Quarter: 2006Q3

REPORT INFORMATION
  Report Type: 
  Country: None (occurrence: None)
  Receive Date: 20060822
  Receipt Date: 20060801
  Transmission Date: 20061208
  Serious: Yes (Other)
  Sender: FDA-Public Use
  Company Number: US200608000186

PATIENT
  Sex: Male

DRUGS (4)
  1. PROZAC [Suspect]
     Indication: DEPRESSION
     Dosage: 40 MG, ORAL
     Route: 048
     Dates: start: 20000101
  2. WELLBUTRIN [Concomitant]
  3. RANITIDINE [Concomitant]
  4. CONCERTA [Concomitant]

REACTIONS (1)
  - GASTRIC BYPASS [None]
